FAERS Safety Report 10433008 (Version 1)
Quarter: 2014Q3

REPORT INFORMATION
  Report Type: Spontaneous
  Country: AU (occurrence: AU)
  Receive Date: 20140905
  Receipt Date: 20140905
  Transmission Date: 20150326
  Serious: Yes (Other)
  Sender: FDA-Public Use
  Company Number: AU-ABBVIE-14P-008-1280291-00

PATIENT
  Age: 2 Year
  Sex: Female

DRUGS (3)
  1. KLACID [Suspect]
     Active Substance: CLARITHROMYCIN
     Indication: PRODUCT USED FOR UNKNOWN INDICATION
     Dates: start: 20140615
  2. FISH OIL [Concomitant]
     Active Substance: FISH OIL
     Indication: PRODUCT USED FOR UNKNOWN INDICATION
  3. KIDS VITAMIN [Concomitant]
     Indication: PRODUCT USED FOR UNKNOWN INDICATION

REACTIONS (5)
  - Scratch [Unknown]
  - Rash [Unknown]
  - Gait disturbance [Unknown]
  - Abdominal tenderness [Unknown]
  - Convulsion [Unknown]

NARRATIVE: CASE EVENT DATE: 2014
